FAERS Safety Report 8167064-3 (Version None)
Quarter: 2012Q1

REPORT INFORMATION
  Report Type: 
  Country: None (occurrence: None)
  Receive Date: 20120227
  Receipt Date: 20120217
  Transmission Date: 20120608
  Serious: Yes (Other)
  Sender: FDA-Public Use
  Company Number: CA-JNJFOC-20120209294

PATIENT

DRUGS (3)
  1. VALPROATE SODIUM [Concomitant]
     Indication: DRUG THERAPY
     Route: 065
  2. RISPERIDONE [Suspect]
     Indication: BIPOLAR I DISORDER
     Route: 065
  3. LITHIUM CARBONATE [Concomitant]
     Indication: DRUG THERAPY
     Route: 065

REACTIONS (3)
  - MEMORY IMPAIRMENT [None]
  - LEARNING DISORDER [None]
  - NEUROPSYCHOLOGICAL TEST ABNORMAL [None]
